FAERS Safety Report 7357667-8 (Version None)
Quarter: 2011Q1

REPORT INFORMATION
  Report Type: 
  Country: None (occurrence: None)
  Receive Date: 20110317
  Receipt Date: 20110308
  Transmission Date: 20110831
  Serious: Yes (Hospitalization, Other)
  Sender: FDA-Public Use
  Company Number: ES-JNJFOC-20100701017

PATIENT
  Age: 54 Year
  Sex: Female

DRUGS (1)
  1. STELARA [Suspect]
     Indication: PUSTULAR PSORIASIS
     Route: 058

REACTIONS (7)
  - POLYSEROSITIS [None]
  - HERPES VIRUS INFECTION [None]
  - ASCITES [None]
  - ATRIAL FLUTTER [None]
  - OFF LABEL USE [None]
  - ATRIAL FIBRILLATION [None]
  - PERICARDIAL EFFUSION [None]
